FAERS Safety Report 4325416-3 (Version None)
Quarter: 2004Q1

REPORT INFORMATION
  Report Type: 
  Country: None (occurrence: None)
  Receive Date: 20040324
  Receipt Date: 20040316
  Transmission Date: 20041129
  Serious: Yes (Other)
  Sender: FDA-Public Use
  Company Number: 2004203789US

PATIENT
  Age: 52 Year
  Sex: Female

DRUGS (6)
  1. CELEBREX [Suspect]
     Dosage: 200 MG, BID
     Dates: start: 20010201
  2. CELEBREX [Suspect]
     Dosage: 200 MG, BID
     Dates: start: 20010101
  3. SINGULAIR [Concomitant]
  4. FOSAMAX [Concomitant]
  5. CLARITIN [Concomitant]
  6. SEREVENT [Concomitant]

REACTIONS (1)
  - VISION BLURRED [None]
